FAERS Safety Report 5847160-3 (Version None)
Quarter: 2008Q3

REPORT INFORMATION
  Report Type: 
  Country: None (occurrence: None)
  Receive Date: 20080815
  Receipt Date: 20080808
  Transmission Date: 20090109
  Serious: Yes (Hospitalization, Other)
  Sender: FDA-Public Use
  Company Number: PHEH2008US06626

PATIENT
  Sex: Female
  Weight: 53.061 kg

DRUGS (1)
  1. RECLAST [Suspect]
     Indication: OSTEOPOROSIS
     Dosage: 5 MG IV YEARLY
     Dates: start: 20071201

REACTIONS (15)
  - BLOOD THYROID STIMULATING HORMONE DECREASED [None]
  - GINGIVAL ABSCESS [None]
  - HYPOAESTHESIA FACIAL [None]
  - HYPOPHAGIA [None]
  - INCISIONAL DRAINAGE [None]
  - JAW OPERATION [None]
  - LIP SWELLING [None]
  - OSTEOMYELITIS [None]
  - OSTEOMYELITIS DRAINAGE [None]
  - PYREXIA [None]
  - SWELLING FACE [None]
  - TOOTH DISORDER [None]
  - TOOTH EXTRACTION [None]
  - TOOTHACHE [None]
  - TRISMUS [None]
